FAERS Safety Report 12099349 (Version 1)
Quarter: 2016Q1

REPORT INFORMATION
  Report Type: Spontaneous
  Country: US (occurrence: US)
  Receive Date: 20160222
  Receipt Date: 20160222
  Transmission Date: 20160526
  Serious: No
  Sender: FDA-Public Use
  Company Number: US-TEVA-566843USA

PATIENT
  Age: 21 Month

DRUGS (1)
  1. AMOXICILLIN. [Suspect]
     Active Substance: AMOXICILLIN
     Dosage: X 10 DAYS

REACTIONS (2)
  - Product quality issue [Unknown]
  - Rash generalised [Unknown]
